FAERS Safety Report 19400716 (Version 4)
Quarter: 2021Q3

REPORT INFORMATION
  Report Type: Other
  Country: CA (occurrence: CA)
  Receive Date: 20210610
  Receipt Date: 20210810
  Transmission Date: 20211014
  Serious: Yes (Hospitalization, Other)
  Sender: FDA-Public Use
  Company Number: CA-APOTEX-2021AP013167

PATIENT
  Age: 44 Year
  Sex: Male

DRUGS (41)
  1. DULOXETINE. [Interacting]
     Active Substance: DULOXETINE
     Indication: NEURALGIA
  2. TEMAZEPAM. [Interacting]
     Active Substance: TEMAZEPAM
     Indication: PAIN
     Dosage: UNK
     Route: 065
  3. KETAMINE [Interacting]
     Active Substance: KETAMINE
     Dosage: 0.5 MILLIGRAM/KILOGRAM
     Route: 042
  4. KETAMINE [Interacting]
     Active Substance: KETAMINE
     Dosage: UNK
     Route: 042
  5. MIDAZOLAM. [Interacting]
     Active Substance: MIDAZOLAM
     Dosage: 1 DOSAGE FORM, Q.WK.
     Route: 042
  6. DULOXETIN TEVA [Interacting]
     Active Substance: DULOXETINE HYDROCHLORIDE
     Indication: PAIN
     Dosage: UNK
     Route: 065
  7. MAGNESIUM SULFATE. [Concomitant]
     Active Substance: MAGNESIUM SULFATE
     Dosage: 15 MILLIGRAM/KILOGRAM, Q.H.
     Route: 065
  8. ONDANSETRON [Interacting]
     Active Substance: ONDANSETRON
     Indication: PROPHYLAXIS
     Dosage: UNK, QD
     Route: 042
  9. ZOPICLONE [Interacting]
     Active Substance: ZOPICLONE
     Indication: NEURALGIA
  10. KETAMINE [Interacting]
     Active Substance: KETAMINE
     Indication: PAIN
     Dosage: UNK
     Route: 040
  11. KETAMINE [Interacting]
     Active Substance: KETAMINE
     Dosage: 1.6 MILLIGRAM/KILOGRAM, Q.H.
     Route: 042
  12. AMITRIPTYLINE WITH PERPHENAZINE [Interacting]
     Active Substance: AMITRIPTYLINE\PERPHENAZINE
     Indication: PAIN
     Dosage: UNK
     Route: 065
  13. MARINOL [Interacting]
     Active Substance: DRONABINOL
     Dosage: UNK
     Route: 065
  14. DULOXETINE. [Suspect]
     Active Substance: DULOXETINE
     Indication: PAIN
     Dosage: UNK
     Route: 065
  15. CBD OIL [Interacting]
     Active Substance: CANNABIDIOL\HERBALS
     Indication: PAIN
     Dosage: UNK
     Route: 065
  16. DRONABINOL. [Interacting]
     Active Substance: DRONABINOL
     Dosage: UNK
     Route: 065
  17. ZOPICLONE [Interacting]
     Active Substance: ZOPICLONE
     Indication: PAIN
     Dosage: UNK
     Route: 065
  18. CANNABIDIOL [Interacting]
     Active Substance: CANNABIDIOL
     Indication: PAIN
     Dosage: UNK
     Route: 065
  19. DEXAMETHASONE. [Interacting]
     Active Substance: DEXAMETHASONE
     Dosage: UNK
     Route: 042
  20. LIDOCAINE. [Interacting]
     Active Substance: LIDOCAINE
     Indication: ANALGESIC THERAPY
     Dosage: 5.0 MILLIGRAM/KILOGRAM
     Route: 065
  21. MARINOL [Interacting]
     Active Substance: DRONABINOL
     Indication: ANALGESIC THERAPY
     Dosage: 0.3 GRAM, Q.WK.
     Route: 065
  22. DEXAMETHASONE. [Concomitant]
     Active Substance: DEXAMETHASONE
     Indication: PROPHYLAXIS
     Dosage: UNK
     Route: 042
  23. LIDOCAINE. [Concomitant]
     Active Substance: LIDOCAINE
     Indication: NEURALGIA
     Dosage: 5 MILLIGRAM/KILOGRAM
     Route: 065
  24. ONDANSETRON [Concomitant]
     Active Substance: ONDANSETRON
     Indication: PROPHYLAXIS
     Dosage: UNK
     Route: 042
  25. MAGNESIUM SULFATE. [Interacting]
     Active Substance: MAGNESIUM SULFATE
     Indication: ANALGESIC THERAPY
     Dosage: 50.0 MILLIGRAM/KILOGRAM
     Route: 065
  26. MIDAZOLAM. [Interacting]
     Active Substance: MIDAZOLAM
     Indication: PROPHYLAXIS
     Dosage: UNK, QD
     Route: 042
  27. DRONABINOL. [Interacting]
     Active Substance: DRONABINOL
     Indication: ANALGESIC THERAPY
     Dosage: 0.3 GRAM, Q.WK.
     Route: 065
  28. DULOXETIN TEVA [Interacting]
     Active Substance: DULOXETINE HYDROCHLORIDE
     Indication: NEURALGIA
  29. KETAMINE [Interacting]
     Active Substance: KETAMINE
     Indication: NEURALGIA
     Dosage: 0.5 MILLIGRAM/KILOGRAM
     Route: 042
  30. DEXAMETHASONE. [Interacting]
     Active Substance: DEXAMETHASONE
     Indication: PROPHYLAXIS
     Dosage: UNK, QD
     Route: 042
  31. AMITRIPTYLINE [Interacting]
     Active Substance: AMITRIPTYLINE
     Indication: NEURALGIA
  32. ONDANSETRON [Interacting]
     Active Substance: ONDANSETRON
     Dosage: 1 DOSAGE FORM, Q.WK.
     Route: 042
  33. KETAMINE [Interacting]
     Active Substance: KETAMINE
     Dosage: 0.5 MILLIGRAM/KILOGRAM
     Route: 042
  34. DULOXETINE SANDOZ [Suspect]
     Active Substance: DULOXETINE
     Indication: NEURALGIA
     Dosage: UNK
     Route: 065
  35. LIDOCAINE. [Concomitant]
     Active Substance: LIDOCAINE
     Indication: ANALGESIC THERAPY
     Dosage: UNK
     Route: 042
  36. MAGNESIUM SULFATE. [Concomitant]
     Active Substance: MAGNESIUM SULFATE
     Indication: ANALGESIC THERAPY
     Dosage: UNK
     Route: 041
  37. AMITRIPTYLINE [Interacting]
     Active Substance: AMITRIPTYLINE
     Indication: PAIN
     Dosage: UNK
     Route: 065
  38. TEMAZEPAM. [Interacting]
     Active Substance: TEMAZEPAM
     Indication: NEURALGIA
  39. CANNABIDIOL [Interacting]
     Active Substance: CANNABIDIOL
     Indication: NEURALGIA
  40. MAGNESIUM SULFATE. [Concomitant]
     Active Substance: MAGNESIUM SULFATE
     Indication: NEURALGIA
     Dosage: UNK
     Route: 040
  41. MAGNESIUM SULFATE. [Concomitant]
     Active Substance: MAGNESIUM SULFATE
     Dosage: 50 MILLIGRAM/KILOGRAM
     Route: 065

REACTIONS (11)
  - Behaviour disorder [Recovered/Resolved]
  - Disinhibition [Recovered/Resolved]
  - Drug level increased [Recovered/Resolved]
  - Aggression [Recovered/Resolved]
  - Drug interaction [Recovered/Resolved]
  - Psychotic disorder [Recovered/Resolved]
  - Agitation [Recovered/Resolved]
  - Hypersexuality [Recovered/Resolved]
  - Confusional state [Recovered/Resolved]
  - Off label use [Unknown]
  - Restlessness [Recovered/Resolved]
